FAERS Safety Report 18001255 (Version 2)
Quarter: 2020Q3

REPORT INFORMATION
  Report Type: Report from Study
  Country: RO (occurrence: RO)
  Receive Date: 20200709
  Receipt Date: 20200724
  Transmission Date: 20201103
  Serious: Yes (Death, Other)
  Sender: FDA-Public Use
  Company Number: RO-BRISTOL-MYERS SQUIBB COMPANY-BMS-2020-054820

PATIENT
  Age: 66 Year
  Sex: Female

DRUGS (1)
  1. APIXABAN [Suspect]
     Active Substance: APIXABAN
     Indication: PRODUCT USED FOR UNKNOWN INDICATION
     Dosage: UNK
     Route: 065
     Dates: start: 201803, end: 20200627

REACTIONS (2)
  - Renal failure [Fatal]
  - Infarction [Fatal]

NARRATIVE: CASE EVENT DATE: 202006
